FAERS Safety Report 23914522 (Version 1)
Quarter: 2024Q2

REPORT INFORMATION
  Report Type: Spontaneous
  Country: PT (occurrence: PT)
  Receive Date: 20240529
  Receipt Date: 20240529
  Transmission Date: 20240715
  Serious: Yes (Life-Threatening, Hospitalization, Other)
  Sender: FDA-Public Use
  Company Number: PT-SUN PHARMACEUTICAL INDUSTRIES LTD-2024R1-448450

PATIENT
  Age: 37 Year
  Sex: Female

DRUGS (1)
  1. ASPIRIN [Suspect]
     Active Substance: ASPIRIN
     Indication: Product used for unknown indication
     Dosage: UNK
     Route: 065

REACTIONS (6)
  - Upper gastrointestinal haemorrhage [Unknown]
  - Varices oesophageal [Unknown]
  - Shock haemorrhagic [Unknown]
  - Multiple organ dysfunction syndrome [Unknown]
  - Encephalopathy [Unknown]
  - Hepatic function abnormal [Unknown]
